FAERS Safety Report 21063705 (Version 1)
Quarter: 2022Q3

REPORT INFORMATION
  Report Type: Spontaneous
  Country: US (occurrence: None)
  Receive Date: 20220709
  Receipt Date: 20220709
  Transmission Date: 20221026
  Serious: Yes (Other)
  Sender: FDA-Public Use
  Company Number: None

PATIENT
  Age: 47 Year
  Sex: Female
  Weight: 76.5 kg

DRUGS (7)
  1. PAXLOVID [Suspect]
     Active Substance: NIRMATRELVIR\RITONAVIR
     Indication: COVID-19
     Dates: start: 20220628, end: 20220703
  2. Sprintec (hormonal birth control) [Concomitant]
  3. Fluoxitine 20 [Concomitant]
  4. Buspar 5 (2x per day) [Concomitant]
  5. Losartin 25 [Concomitant]
  6. PULMICORT TURBUHALER [Concomitant]
     Active Substance: BUDESONIDE
  7. VITAMIN D NOS [Concomitant]
     Active Substance: VITAMIN D NOS

REACTIONS (3)
  - Product after taste [None]
  - Condition aggravated [None]
  - Disease recurrence [None]

NARRATIVE: CASE EVENT DATE: 20220708
